FAERS Safety Report 18860557 (Version 1)
Quarter: 2021Q1

REPORT INFORMATION
  Report Type: Report from Study
  Country: US (occurrence: US)
  Receive Date: 20210208
  Receipt Date: 20210208
  Transmission Date: 20210420
  Serious: No
  Sender: FDA-Public Use
  Company Number: US-IPSEN BIOPHARMACEUTICALS, INC.-2019-21630

PATIENT
  Age: 19 Year

DRUGS (1)
  1. DYSPORT [Suspect]
     Active Substance: ABOBOTULINUMTOXINA
     Indication: MUSCLE SPASTICITY
     Dosage: ELBOW FELXORS 200 UNITS  SHOULDER FLEXORS 200 UNITS
     Route: 030

REACTIONS (1)
  - Muscle spasticity [Unknown]
